FAERS Safety Report 5012334-0 (Version None)
Quarter: 2006Q2

REPORT INFORMATION
  Report Type: 
  Country: None (occurrence: None)
  Receive Date: 20060404
  Receipt Date: 20060104
  Transmission Date: 20061013
  Serious: No
  Sender: FDA-Public Use
  Company Number: US200601000618

PATIENT
  Age: 86 Year
  Sex: Male

DRUGS (9)
  1. CYMBALTA [Suspect]
     Dosage: 20 MG
     Dates: start: 20051201
  2. METOPROLOL [Concomitant]
  3. BUSPAR                          /AUS/ (BUSPIRONE HYDROCHLORIDE) [Concomitant]
  4. COZAAR [Concomitant]
  5. LASIX [Concomitant]
  6. GLYBURIDE [Concomitant]
  7. RITALIN [Concomitant]
  8. AVANDIA [Concomitant]
  9. LIPITOR [Concomitant]

REACTIONS (1)
  - BLOOD AMYLASE INCREASED [None]
